FAERS Safety Report 19797028 (Version 1)
Quarter: 2021Q3

REPORT INFORMATION
  Report Type: Spontaneous
  Country: US (occurrence: US)
  Receive Date: 20210907
  Receipt Date: 20210907
  Transmission Date: 20211014
  Serious: No
  Sender: FDA-Public Use
  Company Number: US-GILEAD-2021-0547313

PATIENT
  Age: 72 Year
  Sex: Male

DRUGS (3)
  1. EPCLUSA [Suspect]
     Active Substance: SOFOSBUVIR\VELPATASVIR
     Indication: CHRONIC HEPATITIS C
     Dosage: 1 DOSAGE FORM, QD
     Route: 048
     Dates: start: 20210729
  2. FUROSEMIDE. [Concomitant]
     Active Substance: FUROSEMIDE
  3. NADOLOL. [Concomitant]
     Active Substance: NADOLOL

REACTIONS (2)
  - Dry skin [Unknown]
  - Pollakiuria [Unknown]
